FAERS Safety Report 6680018-9 (Version None)
Quarter: 2010Q2

REPORT INFORMATION
  Report Type: 
  Country: None (occurrence: None)
  Receive Date: 20100413
  Receipt Date: 20100401
  Transmission Date: 20101027
  Serious: Yes (Other)
  Sender: FDA-Public Use
  Company Number: BR-PFIZER INC-2010041880

PATIENT
  Age: 51 Year
  Sex: Female
  Weight: 61 kg

DRUGS (8)
  1. CHAMPIX [Suspect]
     Indication: TOBACCO USER
     Dosage: UNK
     Route: 048
     Dates: start: 20100119, end: 20100101
  2. CHAMPIX [Suspect]
     Dosage: 1 MG, EVERY 12 HOURS
     Route: 048
     Dates: start: 20100101
  3. FLUNARIZINE [Concomitant]
     Dosage: UNK
  4. SERTRALINE [Concomitant]
     Dosage: UNK
  5. CYANOCOBALAMIN [Concomitant]
     Dosage: UNK
  6. PYRIDOXINE [Concomitant]
     Dosage: UNK
  7. THIAMINE [Concomitant]
     Dosage: UNK
  8. DICLOFENAC [Concomitant]
     Dosage: UNK

REACTIONS (1)
  - SEDATION [None]
